FAERS Safety Report 5477752-5 (Version None)
Quarter: 2007Q4

REPORT INFORMATION
  Report Type: 
  Country: None (occurrence: None)
  Receive Date: 20071002
  Receipt Date: 20071002
  Transmission Date: 20080405
  Serious: No
  Sender: FDA-Public Use
  Company Number: None

PATIENT
  Age: 67 Year

DRUGS (2)
  1. VERPAMIL HCL [Suspect]
     Indication: CARDIAC DISORDER
     Dosage: 270MG NIGHT BUCCAL
     Route: 002
     Dates: start: 20030709, end: 20070930
  2. LIPITOR [Suspect]
     Dosage: 10MG NIGHT BUCCAL
     Route: 002
     Dates: start: 20030709, end: 20070930

REACTIONS (1)
  - MEMORY IMPAIRMENT [None]
